FAERS Safety Report 8249194-0 (Version None)
Quarter: 2012Q1

REPORT INFORMATION
  Report Type: 
  Country: None (occurrence: None)
  Receive Date: 20120314
  Receipt Date: 20120229
  Transmission Date: 20120608
  Serious: Yes (Life-Threatening, Hospitalization, Other)
  Sender: FDA-Public Use
  Company Number: 2011029448

PATIENT
  Sex: Female
  Weight: 95.2554 kg

DRUGS (9)
  1. BERINERT [Suspect]
     Indication: HEREDITARY ANGIOEDEMA
     Dosage: INTRAVENOUS (NOT OTHERWISE SPECIFIED)
     Route: 042
     Dates: start: 20110622, end: 20110712
  2. PEPCID [Concomitant]
  3. ACETAMINOPHEN [Concomitant]
  4. BENADRYL [Concomitant]
  5. SUDAFED 12 HOUR [Concomitant]
  6. BERINERT [Suspect]
     Indication: HEREDITARY ANGIOEDEMA
     Dosage: INFUSION RATE 5 MIN; 500 TO 1500 UNITS TWO TO THREE TIMES A WEEK INTRAVENOUS (NOT OTHERWISE SPECIFIE
     Route: 042
     Dates: start: 20110712, end: 20110712
  7. ZYRTEC [Concomitant]
  8. VITAMIN D [Concomitant]
  9. VICODIN [Concomitant]

REACTIONS (9)
  - FACTITIOUS DISORDER [None]
  - MEDICAL DEVICE COMPLICATION [None]
  - SUBCLAVIAN VEIN THROMBOSIS [None]
  - MUNCHAUSEN'S SYNDROME [None]
  - JUGULAR VEIN THROMBOSIS [None]
  - AXILLARY VEIN THROMBOSIS [None]
  - DEEP VEIN THROMBOSIS [None]
  - ANAEMIA [None]
  - LIVER DISORDER [None]
